FAERS Safety Report 6653984-5 (Version None)
Quarter: 2010Q1

REPORT INFORMATION
  Report Type: 
  Country: None (occurrence: None)
  Receive Date: 20100324
  Receipt Date: 20100315
  Transmission Date: 20100710
  Serious: Yes (Other)
  Sender: FDA-Public Use
  Company Number: 2010SP002624

PATIENT
  Age: 45 Year
  Sex: Male
  Weight: 69.9 kg

DRUGS (5)
  1. REMERON [Suspect]
     Indication: DEPRESSIVE SYMPTOM
     Dosage: 30 MG;QD; PO;  30 MG; PRN; PO
     Route: 048
     Dates: start: 20091111, end: 20091223
  2. REMERON [Suspect]
     Indication: DEPRESSIVE SYMPTOM
     Dosage: 30 MG;QD; PO;  30 MG; PRN; PO
     Route: 048
     Dates: start: 20091224, end: 20100111
  3. REMERON [Suspect]
     Indication: DEPRESSIVE SYMPTOM
     Dosage: 30 MG;QD; PO;  30 MG; PRN; PO
     Route: 048
     Dates: start: 20100127
  4. DEPROMEL [Concomitant]
  5. AMOXAN [Concomitant]

REACTIONS (1)
  - HYPOCHONDRIASIS [None]
